FAERS Safety Report 8229821 (Version 24)
Quarter: 2017Q1

REPORT INFORMATION
  Report Type: Report from Study
  Country: CA (occurrence: CA)
  Receive Date: 20111104
  Receipt Date: 20170228
  Transmission Date: 20170429
  Serious: Yes (Other)
  Sender: FDA-Public Use
  Company Number: CA-ROCHE-GNE274406

PATIENT
  Age: 52 Year
  Sex: Female
  Weight: 56 kg

DRUGS (23)
  1. OMALIZUMAB [Suspect]
     Active Substance: OMALIZUMAB
     Dosage: UNK
     Route: 058
     Dates: start: 20160418
  2. FENTANYL. [Suspect]
     Active Substance: FENTANYL
     Indication: PRODUCT USED FOR UNKNOWN INDICATION
     Route: 065
  3. OMALIZUMAB [Suspect]
     Active Substance: OMALIZUMAB
     Dosage: UNK
     Route: 058
     Dates: start: 20070801
  4. OMALIZUMAB [Suspect]
     Active Substance: OMALIZUMAB
     Dosage: UNK
     Route: 058
     Dates: start: 20160906
  5. OMALIZUMAB [Suspect]
     Active Substance: OMALIZUMAB
     Dosage: UNK
     Route: 058
     Dates: start: 20161212
  6. OMALIZUMAB [Suspect]
     Active Substance: OMALIZUMAB
     Dosage: UNK
     Route: 058
     Dates: start: 20140811
  7. OMALIZUMAB [Suspect]
     Active Substance: OMALIZUMAB
     Dosage: UNK
     Route: 058
     Dates: start: 20160627
  8. OMALIZUMAB [Suspect]
     Active Substance: OMALIZUMAB
     Dosage: 225 MG, BIW
     Route: 058
     Dates: start: 20160321
  9. OMALIZUMAB [Suspect]
     Active Substance: OMALIZUMAB
     Route: 058
     Dates: start: 20170206
  10. OMALIZUMAB [Suspect]
     Active Substance: OMALIZUMAB
     Indication: ASTHMA
     Dosage: 300 MG, EVERY 4 WEEKS
     Route: 058
     Dates: start: 20070607
  11. OMALIZUMAB [Suspect]
     Active Substance: OMALIZUMAB
     Route: 058
  12. CODEINE [Concomitant]
     Active Substance: CODEINE
  13. OMALIZUMAB [Suspect]
     Active Substance: OMALIZUMAB
     Dosage: UNK
     Route: 058
     Dates: start: 20160727
  14. OMALIZUMAB [Suspect]
     Active Substance: OMALIZUMAB
     Dosage: UNK
     Route: 058
     Dates: start: 20160919
  15. OMALIZUMAB [Suspect]
     Active Substance: OMALIZUMAB
     Dosage: UNK
     Route: 058
     Dates: start: 20170113
  16. FIORINAL (CANADA) [Concomitant]
  17. OMALIZUMAB [Suspect]
     Active Substance: OMALIZUMAB
     Dosage: UNK
     Route: 058
     Dates: start: 20160613
  18. OMALIZUMAB [Suspect]
     Active Substance: OMALIZUMAB
     Dosage: UNK
     Route: 058
     Dates: start: 20170113
  19. OMALIZUMAB [Suspect]
     Active Substance: OMALIZUMAB
     Route: 058
  20. OMALIZUMAB [Suspect]
     Active Substance: OMALIZUMAB
     Dosage: 300 MG, EVERY 4 WEEKS
     Route: 058
     Dates: start: 20100210
  21. OMALIZUMAB [Suspect]
     Active Substance: OMALIZUMAB
     Dosage: UNK
     Route: 058
     Dates: start: 20160502
  22. OMALIZUMAB [Suspect]
     Active Substance: OMALIZUMAB
     Route: 058
  23. SYNTHROID [Concomitant]
     Active Substance: LEVOTHYROXINE SODIUM
     Indication: PRODUCT USED FOR UNKNOWN INDICATION
     Dosage: UNK
     Route: 065

REACTIONS (39)
  - Blood pressure decreased [Unknown]
  - Hypersensitivity [Unknown]
  - Headache [Unknown]
  - Nasal pruritus [Unknown]
  - Weight decreased [Unknown]
  - Productive cough [Not Recovered/Not Resolved]
  - Thyroid cancer [Recovering/Resolving]
  - Tendonitis [Unknown]
  - Pneumonia [Not Recovered/Not Resolved]
  - Neuromyopathy [Unknown]
  - Pneumonitis [Unknown]
  - Ligament sprain [Unknown]
  - Induration [Unknown]
  - Injection site induration [Recovered/Resolved]
  - Bronchitis [Unknown]
  - Nasopharyngitis [Not Recovered/Not Resolved]
  - Blood immunoglobulin E increased [Unknown]
  - Malaise [Not Recovered/Not Resolved]
  - Feeling hot [Unknown]
  - Brain neoplasm benign [Unknown]
  - Injection site reaction [Unknown]
  - Drug ineffective [Unknown]
  - Limb injury [Unknown]
  - Dyspnoea [Not Recovered/Not Resolved]
  - Benign ovarian tumour [Unknown]
  - Cough [Unknown]
  - Oxygen saturation decreased [Unknown]
  - Secretion discharge [Unknown]
  - Ligament rupture [Unknown]
  - Ear infection [Unknown]
  - Post procedural complication [Unknown]
  - Respiratory tract congestion [Unknown]
  - Pulmonary function test decreased [Unknown]
  - Nervousness [Unknown]
  - Pulmonary fibrosis [Unknown]
  - Lung infection [Recovering/Resolving]
  - Sinusitis [Unknown]
  - Fall [Unknown]
  - Erythema [Unknown]

NARRATIVE: CASE EVENT DATE: 20081212
